FAERS Safety Report 6199150-1 (Version None)
Quarter: 2009Q2

REPORT INFORMATION
  Report Type: 
  Country: None (occurrence: None)
  Receive Date: 20090522
  Receipt Date: 20090130
  Transmission Date: 20091009
  Serious: No
  Sender: FDA-Public Use
  Company Number: A0766122A

PATIENT
  Age: 58 Year
  Sex: Female

DRUGS (3)
  1. VERAMYST [Suspect]
     Dosage: 2SPR PER DAY
     Route: 045
     Dates: start: 20081201, end: 20090109
  2. VALTREX [Concomitant]
  3. ZETIA [Concomitant]

REACTIONS (2)
  - ACNE [None]
  - EPISTAXIS [None]
